FAERS Safety Report 23291793 (Version 2)
Quarter: 2024Q1

REPORT INFORMATION
  Report Type: Report from Study
  Country: US (occurrence: US)
  Receive Date: 20231213
  Receipt Date: 20240127
  Transmission Date: 20240410
  Serious: Yes (Hospitalization, Other)
  Sender: FDA-Public Use
  Company Number: US-ABBVIE-5455793

PATIENT
  Sex: Female

DRUGS (1)
  1. VENCLEXTA [Suspect]
     Active Substance: VENETOCLAX
     Indication: Chronic lymphocytic leukaemia
     Route: 048
     Dates: start: 202304

REACTIONS (14)
  - Diabetic retinopathy [Unknown]
  - Corneal lesion [Unknown]
  - Contusion [Unknown]
  - Muscle rupture [Unknown]
  - Eye haemorrhage [Unknown]
  - Depression [Unknown]
  - Crying [Unknown]
  - Localised infection [Unknown]
  - Stomatitis [Not Recovered/Not Resolved]
  - Corneal infection [Unknown]
  - Pain in extremity [Unknown]
  - Laboratory test abnormal [Unknown]
  - Night sweats [Not Recovered/Not Resolved]
  - Platelet count decreased [Unknown]

NARRATIVE: CASE EVENT DATE: 20230101
